FAERS Safety Report 14434310 (Version 1)
Quarter: 2018Q1

REPORT INFORMATION
  Report Type: Spontaneous
  Country: FR (occurrence: FR)
  Receive Date: 20180124
  Receipt Date: 20180124
  Transmission Date: 20180509
  Serious: Yes (Hospitalization)
  Sender: FDA-Public Use
  Company Number: FR-TEVA-2018-FR-848561

PATIENT
  Age: 39 Year
  Sex: Female

DRUGS (1)
  1. CEFTRIAXONE BASE [Suspect]
     Active Substance: CEFTRIAXONE
     Indication: INFECTION
     Route: 065
     Dates: start: 20171130

REACTIONS (1)
  - Pancreatitis acute [Not Recovered/Not Resolved]
